FAERS Safety Report 21550559 (Version 3)
Quarter: 2022Q4

REPORT INFORMATION
  Report Type: Spontaneous
  Country: IN (occurrence: IN)
  Receive Date: 20221103
  Receipt Date: 20221114
  Transmission Date: 20230112
  Serious: Yes (Hospitalization)
  Sender: FDA-Public Use
  Company Number: IN-PFIZER INC-PV202200094229

PATIENT
  Age: 47 Year
  Sex: Female

DRUGS (1)
  1. PALBOCICLIB [Suspect]
     Active Substance: PALBOCICLIB
     Indication: Breast cancer metastatic
     Dosage: 125 MG, CYCLIC (1X/DAY, 3 CYCLES)
     Dates: start: 20220115

REACTIONS (7)
  - Procedural pain [Unknown]
  - Decreased appetite [Unknown]
  - Asthenia [Unknown]
  - Neoplasm progression [Unknown]
  - Red blood cell count decreased [Unknown]
  - Lymphocyte percentage decreased [Unknown]
  - Blood urea increased [Unknown]

NARRATIVE: CASE EVENT DATE: 20220909
